FAERS Safety Report 25679267 (Version 1)
Quarter: 2025Q3

REPORT INFORMATION
  Report Type: Report from Study
  Country: US (occurrence: US)
  Receive Date: 20250814
  Receipt Date: 20250814
  Transmission Date: 20251021
  Serious: No
  Sender: SUNOVION
  Company Number: US-SUMITOMO PHARMA SWITZERLAND GMBH-2024SPA001929

PATIENT
  Age: 63 Year
  Sex: Male

DRUGS (19)
  1. ORGOVYX [Suspect]
     Active Substance: RELUGOLIX
     Indication: Prostate cancer
     Dosage: 360 MG, SINGLE
     Route: 048
     Dates: start: 202403, end: 202403
  2. ORGOVYX [Suspect]
     Active Substance: RELUGOLIX
     Dosage: 120 MG, QD
     Route: 048
     Dates: start: 202403
  3. AMLODIPINE [Concomitant]
     Active Substance: AMLODIPINE BESYLATE
  4. ABIRATERONE [Concomitant]
     Active Substance: ABIRATERONE
  5. BERBERINE [Concomitant]
     Active Substance: BERBERINE
  6. FOLIC ACID [Concomitant]
     Active Substance: FOLIC ACID
  7. FERROUS SULFATE [Concomitant]
     Active Substance: FERROUS SULFATE
  8. LIPITOR [Concomitant]
     Active Substance: ATORVASTATIN CALCIUM
  9. HYDRALAZINE [Concomitant]
     Active Substance: HYDRALAZINE HYDROCHLORIDE
  10. METFORMIN [Concomitant]
     Active Substance: METFORMIN HYDROCHLORIDE
  11. PREDNISONE [Concomitant]
     Active Substance: PREDNISONE
  12. TAMSULOSIN [Concomitant]
     Active Substance: TAMSULOSIN
  13. GABAPENTIN [Concomitant]
     Active Substance: GABAPENTIN
  14. FISH OIL [Concomitant]
     Active Substance: FISH OIL
  15. VITAMIN B12 [Concomitant]
     Active Substance: CYANOCOBALAMIN
  16. VITAMIN B6 [Concomitant]
     Active Substance: PYRIDOXINE HYDROCHLORIDE
  17. VITAMIN D3 [Concomitant]
     Active Substance: CHOLECALCIFEROL
  18. ALPHA LIPOIC ACID [Concomitant]
     Active Substance: .ALPHA.-LIPOIC ACID
  19. VITAMIN B COMPLEX [Concomitant]
     Active Substance: CYANOCOBALAMIN\DEXPANTHENOL\NIACINAMIDE\PYRIDOXINE HYDROCHLORIDE\RIBOFLAVIN 5^-PHOSPHATE SODIUM\THIA

REACTIONS (6)
  - Neuropathy peripheral [Unknown]
  - Plantar fasciitis [Unknown]
  - Full blood count decreased [Unknown]
  - Dizziness [Unknown]
  - Hot flush [Unknown]
  - Hyperhidrosis [Unknown]

NARRATIVE: CASE EVENT DATE: 20240101
